FAERS Safety Report 8243890-7 (Version None)
Quarter: 2012Q1

REPORT INFORMATION
  Report Type: 
  Country: None (occurrence: None)
  Receive Date: 20120329
  Receipt Date: 20110404
  Transmission Date: 20120608
  Serious: No
  Sender: FDA-Public Use
  Company Number: US-MYLANLABS-2011S1007186

PATIENT
  Sex: Female

DRUGS (1)
  1. ESTRADIOL [Suspect]
     Indication: HORMONE REPLACEMENT THERAPY
     Dosage: Q WEEKLY
     Route: 062
     Dates: start: 20070101, end: 20070101

REACTIONS (2)
  - APPLICATION SITE RASH [None]
  - APPLICATION SITE PRURITUS [None]
